FAERS Safety Report 8471745-1 (Version None)
Quarter: 2012Q2

REPORT INFORMATION
  Report Type: 
  Country: None (occurrence: None)
  Receive Date: 20120627
  Receipt Date: 20120613
  Transmission Date: 20120825
  Serious: Yes (Hospitalization, Other)
  Sender: FDA-Public Use
  Company Number: JP-ROCHE-1025009

PATIENT
  Age: 71 Year
  Sex: Male

DRUGS (6)
  1. RANIBIZUMAB [Suspect]
     Dates: start: 20090829
  2. TRIAMCINOLONE [Concomitant]
  3. RANIBIZUMAB [Suspect]
     Indication: AGE-RELATED MACULAR DEGENERATION
     Route: 050
     Dates: start: 20090728
  4. RANIBIZUMAB [Suspect]
     Dates: start: 20090929
  5. RANIBIZUMAB [Suspect]
     Dates: start: 20091030
  6. CRAVIT [Concomitant]
     Dates: start: 20090701, end: 20090701

REACTIONS (1)
  - HYPOGLYCAEMIA [None]
